FAERS Safety Report 17868286 (Version 3)
Quarter: 2021Q2

REPORT INFORMATION
  Report Type: Spontaneous
  Country: US (occurrence: US)
  Receive Date: 20200605
  Receipt Date: 20210406
  Transmission Date: 20210717
  Serious: Yes (Other)
  Sender: FDA-Public Use
  Company Number: US-ROCHE-2613392

PATIENT
  Sex: Female
  Weight: 86.26 kg

DRUGS (5)
  1. TYSABRI [Concomitant]
     Active Substance: NATALIZUMAB
  2. PREDNISONE. [Concomitant]
     Active Substance: PREDNISONE
     Dosage: THREE DAYS
  3. ZYRTEC (UNITED STATES) [Concomitant]
  4. ATARAX [Concomitant]
     Active Substance: HYDROXYZINE HYDROCHLORIDE
  5. OCREVUS [Suspect]
     Active Substance: OCRELIZUMAB
     Indication: RELAPSING MULTIPLE SCLEROSIS
     Route: 042
     Dates: start: 2019

REACTIONS (9)
  - Multiple sclerosis relapse [Unknown]
  - Memory impairment [Unknown]
  - Fracture [Unknown]
  - Inflammation [Unknown]
  - Multiple sclerosis [Unknown]
  - Cognitive disorder [Unknown]
  - Magnetic resonance imaging head abnormal [Unknown]
  - Anaphylactic reaction [Unknown]
  - Fall [Unknown]
